FAERS Safety Report 7749284-2 (Version None)
Quarter: 2011Q3

REPORT INFORMATION
  Report Type: 
  Country: None (occurrence: None)
  Receive Date: 20110908
  Receipt Date: 20110830
  Transmission Date: 20111222
  Serious: Yes (Other)
  Sender: FDA-Public Use
  Company Number: 2011SP040888

PATIENT
  Sex: Female

DRUGS (7)
  1. PEG-INTRON [Suspect]
     Indication: HEPATITIS C
     Dosage: 1 DF;  80 MCG/KG;QW;
     Dates: start: 20110618, end: 20110723
  2. VICTRELIS [Suspect]
     Indication: HEPATITIS C
     Dosage: 800 MG;TID;
     Dates: start: 20110717, end: 20110723
  3. ANTI-DIABETICS [Concomitant]
  4. ANTIDEPRESSIVE [Concomitant]
  5. SLEEPING PILLS [Concomitant]
  6. MORPHINE SULFATE [Concomitant]
  7. REBETOL [Suspect]
     Indication: HEPATITIS C
     Dosage: 1 DF;  800 MG;QD;
     Dates: start: 20110618, end: 20110723

REACTIONS (6)
  - GASTROINTESTINAL DISORDER [None]
  - DECREASED APPETITE [None]
  - POOR PERIPHERAL CIRCULATION [None]
  - ANGINA PECTORIS [None]
  - WOUND [None]
  - WEIGHT DECREASED [None]
